FAERS Safety Report 13751281 (Version 1)
Quarter: 2017Q3

REPORT INFORMATION
  Report Type: Spontaneous
  Country: US (occurrence: US)
  Receive Date: 20170713
  Receipt Date: 20170713
  Transmission Date: 20171127
  Serious: No
  Sender: FDA-Public Use
  Company Number: US-ASTELLAS-2017US014368

PATIENT
  Age: 70 Year
  Sex: Female

DRUGS (2)
  1. MYRBETRIQ [Suspect]
     Active Substance: MIRABEGRON
     Indication: PRODUCT USED FOR UNKNOWN INDICATION
     Dosage: UNK UNK, UNKNOWN FREQ.
     Route: 065
     Dates: start: 201509
  2. PREDNISONE. [Suspect]
     Active Substance: PREDNISONE
     Indication: PRODUCT USED FOR UNKNOWN INDICATION
     Dosage: UNK UNK, UNKNOWN FREQ.
     Route: 065

REACTIONS (12)
  - Cough [Recovered/Resolved]
  - Oral pain [Unknown]
  - Peripheral swelling [Unknown]
  - Headache [Unknown]
  - Insomnia [Unknown]
  - Hypersensitivity [Unknown]
  - Pain [Unknown]
  - Oropharyngeal pain [Unknown]
  - Malaise [Unknown]
  - Oropharyngeal pain [Unknown]
  - Pain [Unknown]
  - Candida infection [Unknown]

NARRATIVE: CASE EVENT DATE: 201612
